FAERS Safety Report 5106776-2 (Version None)
Quarter: 2006Q3

REPORT INFORMATION
  Report Type: 
  Country: None (occurrence: None)
  Receive Date: 20060918
  Receipt Date: 20060906
  Transmission Date: 20061208
  Serious: Yes (Other)
  Sender: FDA-Public Use
  Company Number: JP-BRACCO-BRO-010490

PATIENT
  Sex: Female
  Weight: 42 kg

DRUGS (10)
  1. IOPAMIRON [Suspect]
     Indication: MYOCARDIAL INFARCTION
     Route: 016
     Dates: start: 20051021, end: 20051021
  2. IOPAMIRON [Suspect]
     Indication: PERCUTANEOUS CORONARY INTERVENTION
     Route: 016
     Dates: start: 20051021, end: 20051021
  3. IOPAMIRON [Suspect]
     Indication: CORONARY ANGIOPLASTY
     Route: 016
     Dates: start: 20051021, end: 20051021
  4. MOBIC [Concomitant]
     Route: 050
  5. ASPIRIN [Concomitant]
     Route: 050
  6. LIPITOR                            /01326102/ [Concomitant]
     Route: 050
  7. ISOSORBIDE MONONITRATE [Concomitant]
     Route: 050
  8. PANALDINE [Concomitant]
     Route: 050
  9. ARTIST [Concomitant]
     Route: 050
  10. MYSLEE [Concomitant]
     Route: 050

REACTIONS (8)
  - BLOOD BRAIN BARRIER DEFECT [None]
  - BRAIN SCAN ABNORMAL [None]
  - CLONIC CONVULSION [None]
  - CONTRAST MEDIA REACTION [None]
  - DEVICE FAILURE [None]
  - LOSS OF CONSCIOUSNESS [None]
  - RENAL IMPAIRMENT [None]
  - VISUAL DISTURBANCE [None]
